FAERS Safety Report 5875529-X (Version None)
Quarter: 2008Q3

REPORT INFORMATION
  Report Type: 
  Country: None (occurrence: None)
  Receive Date: 20080909
  Receipt Date: 20080826
  Transmission Date: 20090109
  Serious: No
  Sender: FDA-Public Use
  Company Number: ZA-ELI_LILLY_AND_COMPANY-ZA200808006410

PATIENT
  Age: 18 Year
  Sex: Female

DRUGS (1)
  1. CYMBALTA [Suspect]
     Indication: FIBROMYALGIA
     Dosage: 60 MG, DAILY (1/D)
     Route: 048
     Dates: start: 20070101

REACTIONS (5)
  - BLOOD BILIRUBIN INCREASED [None]
  - JAUNDICE [None]
  - PAIN [None]
  - VOMITING [None]
  - YELLOW SKIN [None]
